FAERS Safety Report 10026704 (Version 2)
Quarter: 2014Q2

REPORT INFORMATION
  Report Type: Spontaneous
  Country: DE (occurrence: DE)
  Receive Date: 20140321
  Receipt Date: 20140602
  Transmission Date: 20141212
  Serious: Yes (Hospitalization)
  Sender: FDA-Public Use
  Company Number: DE-BRISTOL-MYERS SQUIBB COMPANY-20477576

PATIENT
  Age: 90 Year
  Sex: Female

DRUGS (15)
  1. ELIQUIS [Suspect]
     Indication: CEREBROVASCULAR ACCIDENT PROPHYLAXIS
     Dosage: TABLET,ELIQUIS PER DAY IN THE MORNING
     Dates: end: 20140310
  2. SIMVASTATIN [Concomitant]
     Dosage: EVENING
  3. PANTOPRAZOLE [Concomitant]
     Dosage: EVENING
  4. THIAMAZOLE [Concomitant]
     Dosage: 10 MG MORNING
  5. CANDESARTAN [Concomitant]
     Dosage: EVENING
  6. XIPAMIDE [Concomitant]
     Dosage: MORNING
  7. DIGITOXIN [Concomitant]
     Dosage: 1DF: 0.97,UNIT:NOS,MORNINGS, WITH WEEKEND BREAK,
  8. VERAPAMIL [Concomitant]
     Dosage: MORNING AND EVENING
  9. TORASEMIDE [Concomitant]
     Dosage: MORNING AND MIDDAY
  10. INSULIN ACTRAPID [Concomitant]
     Dosage: 1DF: 25 UNIT,MORNING,24 U MIDDAY, 18 U EVENING
  11. PULMICORT [Concomitant]
     Dosage: MORNINGS AND EVENINGS
     Route: 055
  12. SALBUTAMOL [Concomitant]
     Dosage: 1DF= 1 PUFF
  13. ACTRAPID [Concomitant]
     Dosage: 24-24-18-0 INTERNATIONAL UNITS
  14. ACTRAPHANE [Concomitant]
  15. LACTULOSE [Concomitant]

REACTIONS (2)
  - Fall [Recovered/Resolved]
  - Peripheral ischaemia [Recovered/Resolved]
